FAERS Safety Report 8544782-6 (Version None)
Quarter: 2012Q3

REPORT INFORMATION
  Report Type: 
  Country: None (occurrence: None)
  Receive Date: 20120727
  Receipt Date: 20120720
  Transmission Date: 20120928
  Serious: Yes (Hospitalization)
  Sender: FDA-Public Use
  Company Number: US-ACTELION-A-NJ2012-67513

PATIENT

DRUGS (2)
  1. TRACLEER [Suspect]
     Indication: PULMONARY ARTERIAL HYPERTENSION
     Dosage: UNK
     Route: 048
  2. PREDNISONE [Concomitant]

REACTIONS (8)
  - HEART RATE INCREASED [None]
  - CARDIAC FAILURE CONGESTIVE [None]
  - FATIGUE [None]
  - NASOPHARYNGITIS [None]
  - OEDEMA [None]
  - ABNORMAL BEHAVIOUR [None]
  - ATRIAL FIBRILLATION [None]
  - CELLULITIS [None]
